FAERS Safety Report 14349496 (Version 1)
Quarter: 2018Q1

REPORT INFORMATION
  Report Type: Spontaneous
  Country: FR (occurrence: FR)
  Receive Date: 20180104
  Receipt Date: 20180104
  Transmission Date: 20180509
  Serious: Yes (Other)
  Sender: FDA-Public Use
  Company Number: FR-MERCK KGAA-2038349

PATIENT
  Age: 41 Year
  Sex: Female

DRUGS (4)
  1. IXPRIM(ULTRACET)-IXPRIM(ULTRACET)(PARACETAMOL~TRAMADOL HYDROCHLORIDE) [Concomitant]
  2. VALIUM(DIAZEPAM) [Concomitant]
  3. SOLUPRED(PREDNISOLONE) [Concomitant]
  4. NOVOTHYROX [Suspect]
     Active Substance: LEVOTHYROXINE SODIUM
     Indication: PRODUCT USED FOR UNKNOWN INDICATION
     Dates: start: 20170420

REACTIONS (18)
  - Paralysis [Unknown]
  - Fatigue [Unknown]
  - Myalgia [Unknown]
  - Thrombosis [Unknown]
  - Fear [Unknown]
  - Arterial injury [Unknown]
  - Pain [Unknown]
  - Vomiting in pregnancy [Unknown]
  - Tendonitis [Not Recovered/Not Resolved]
  - Asthenia [Unknown]
  - Cervicobrachial syndrome [Unknown]
  - Muscle spasms [Unknown]
  - Anger [Unknown]
  - Menstruation irregular [Unknown]
  - Crying [Unknown]
  - Visual impairment [Unknown]
  - Depressed mood [Unknown]
  - Libido decreased [Unknown]

NARRATIVE: CASE EVENT DATE: 201705
